FAERS Safety Report 5709637-0 (Version None)
Quarter: 2008Q2

REPORT INFORMATION
  Report Type: 
  Country: None (occurrence: None)
  Receive Date: 20080418
  Receipt Date: 20080409
  Transmission Date: 20081010
  Serious: Yes (Hospitalization)
  Sender: FDA-Public Use
  Company Number: B0516484A

PATIENT
  Age: 79 Year
  Sex: Male

DRUGS (6)
  1. ARIXTRA [Suspect]
     Indication: THROMBOSIS
     Dosage: 7.5MG PER DAY
     Route: 058
     Dates: start: 20080226, end: 20080228
  2. KARDEGIC [Suspect]
     Dosage: 160MG PER DAY
     Route: 048
  3. FUROSEMIDE [Suspect]
     Dosage: 20MG PER DAY
     Route: 048
  4. TRIMETAZIDINE [Suspect]
     Dosage: 40MG PER DAY
     Route: 048
  5. SECTRAL [Suspect]
     Dosage: 400MG PER DAY
     Route: 048
  6. ENALAPRIL MALEATE [Suspect]
     Route: 048

REACTIONS (2)
  - ALTERED STATE OF CONSCIOUSNESS [None]
  - HAEMATOMA [None]
